FAERS Safety Report 19067813 (Version 10)
Quarter: 2021Q4

REPORT INFORMATION
  Report Type: Report from Study
  Country: US (occurrence: US)
  Receive Date: 20210329
  Receipt Date: 20211029
  Transmission Date: 20220303
  Serious: Yes (Other)
  Sender: FDA-Public Use
  Company Number: US-BOEHRINGERINGELHEIM-2020-BI-065389

PATIENT
  Age: 76 Year
  Sex: Female
  Weight: 50.8 kg

DRUGS (3)
  1. OFEV [Suspect]
     Active Substance: NINTEDANIB
     Indication: Idiopathic pulmonary fibrosis
     Dosage: OFEV DOSE 200MG DAILY
     Route: 048
     Dates: start: 20190814, end: 20201231
  2. OFEV [Suspect]
     Active Substance: NINTEDANIB
     Route: 048
     Dates: start: 20210114
  3. OFEV [Suspect]
     Active Substance: NINTEDANIB
     Route: 048

REACTIONS (20)
  - Skin cancer [Recovered/Resolved]
  - Nausea [Unknown]
  - Diarrhoea [Recovered/Resolved]
  - Abdominal distension [Recovered/Resolved]
  - Flatulence [Unknown]
  - Diarrhoea [Unknown]
  - Alopecia [Unknown]
  - Fatigue [Unknown]
  - Diarrhoea infectious [Unknown]
  - Flatulence [Unknown]
  - Paraesthesia [Unknown]
  - Asthenia [Unknown]
  - Dizziness [Unknown]
  - Balance disorder [Unknown]
  - Cardiomegaly [Unknown]
  - Gastrooesophageal reflux disease [Unknown]
  - Fatigue [Recovering/Resolving]
  - Abdominal distension [Unknown]
  - Fatigue [Unknown]
  - Abdominal discomfort [Recovered/Resolved]

NARRATIVE: CASE EVENT DATE: 20190814
